FAERS Safety Report 5232154-1 (Version None)
Quarter: 2007Q1

REPORT INFORMATION
  Report Type: 
  Country: None (occurrence: None)
  Receive Date: 20061205
  Receipt Date: 20060828
  Transmission Date: 20070707
  Serious: No
  Sender: FDA-Public Use
  Company Number: PHEH2006US11082

PATIENT
  Sex: Male

DRUGS (2)
  1. EXJADE [Suspect]
  2. CONCERTA [Suspect]

REACTIONS (2)
  - AGITATION [None]
  - DRUG INTERACTION [None]
